FAERS Safety Report 5288197-5 (Version None)
Quarter: 2007Q2

REPORT INFORMATION
  Report Type: 
  Country: None (occurrence: None)
  Receive Date: 20070402
  Receipt Date: 20070402
  Transmission Date: 20071010
  Serious: Yes (Hospitalization)
  Sender: FDA-Public Use
  Company Number: None

PATIENT
  Age: 56 Year
  Sex: Female
  Weight: 55.7924 kg

DRUGS (2)
  1. VANCOMYCIN [Suspect]
     Indication: CELLULITIS ORBITAL
     Dosage: 1 GM EVERY 72H IV
     Route: 042
  2. ROCEPHIN [Suspect]
     Dosage: 2 GM DAILY IV
     Route: 042

REACTIONS (3)
  - EYE IRRITATION [None]
  - EYE PRURITUS [None]
  - THROAT TIGHTNESS [None]
